FAERS Safety Report 7694066-3 (Version None)
Quarter: 2011Q3

REPORT INFORMATION
  Report Type: 
  Country: None (occurrence: None)
  Receive Date: 20110819
  Receipt Date: 20110815
  Transmission Date: 20111222
  Serious: Yes (Hospitalization)
  Sender: FDA-Public Use
  Company Number: US-ABBOTT-11P-163-0846901-00

PATIENT
  Sex: Female
  Weight: 52.21 kg

DRUGS (3)
  1. PENTASA [Concomitant]
     Indication: CROHN'S DISEASE
     Dates: start: 20110401
  2. HUMIRA [Suspect]
     Indication: CROHN'S DISEASE
     Dates: start: 20100901, end: 20110301
  3. ORTHO TRI-CYCLEN LO [Concomitant]
     Indication: CONTRACEPTION

REACTIONS (4)
  - ANORECTAL DISORDER [None]
  - GASTROINTESTINAL MOTILITY DISORDER [None]
  - RECTAL ABSCESS [None]
  - PROCTALGIA [None]
